FAERS Safety Report 17512611 (Version 2)
Quarter: 2020Q1

REPORT INFORMATION
  Report Type: Report from Study
  Country: US (occurrence: US)
  Receive Date: 20200306
  Receipt Date: 20200312
  Transmission Date: 20200409
  Serious: Yes (Disabling)
  Sender: FDA-Public Use
  Company Number: US-ALLERGAN-2009248US

PATIENT
  Sex: Female

DRUGS (6)
  1. LEVOMILNACIPRAN 80MG CAP [Suspect]
     Active Substance: LEVOMILNACIPRAN
     Indication: PANIC ATTACK
  2. LEVOMILNACIPRAN 80MG CAP [Suspect]
     Active Substance: LEVOMILNACIPRAN
     Indication: ANXIETY
  3. LEVOMILNACIPRAN 80MG CAP [Suspect]
     Active Substance: LEVOMILNACIPRAN
     Indication: DYSPNOEA
  4. LEVOMILNACIPRAN 80MG CAP [Suspect]
     Active Substance: LEVOMILNACIPRAN
     Indication: HEART RATE INCREASED
  5. LEVOMILNACIPRAN 80MG CAP [Suspect]
     Active Substance: LEVOMILNACIPRAN
     Indication: DEPRESSION
     Dosage: 80 MG, QD
     Route: 065
     Dates: start: 2014
  6. LEVOMILNACIPRAN 80MG CAP [Suspect]
     Active Substance: LEVOMILNACIPRAN
     Indication: TREMOR

REACTIONS (6)
  - Back disorder [Unknown]
  - Malaise [Unknown]
  - Off label use [Unknown]
  - Depression [Unknown]
  - Inability to afford medication [Unknown]
  - Therapy cessation [Unknown]
